FAERS Safety Report 15461013 (Version 1)
Quarter: 2018Q4

REPORT INFORMATION
  Report Type: Spontaneous
  Country: US (occurrence: US)
  Receive Date: 20181003
  Receipt Date: 20181003
  Transmission Date: 20190204
  Serious: No
  Sender: FDA-Public Use
  Company Number: US-PERRIGO-18US007786

PATIENT
  Age: 78 Year
  Sex: Female
  Weight: 45.35 kg

DRUGS (3)
  1. IMIQUIMOD. [Suspect]
     Active Substance: IMIQUIMOD
     Dosage: UNKNOWN, UNKNOWN ((MONDAYS, WEDNESDAYS, FRIDAYS
     Route: 061
     Dates: start: 2018, end: 2018
  2. IMIQUIMOD. [Suspect]
     Active Substance: IMIQUIMOD
     Indication: MALIGNANT MELANOMA
     Dosage: UNKNOWN, UNKNOWN (MONDAY-FRIDAY)
     Route: 061
     Dates: start: 20180509, end: 2018
  3. IMIQUIMOD. [Suspect]
     Active Substance: IMIQUIMOD
     Dosage: UNKNOWN, UNKNOWN (MONDAY-FRIDAY)
     Route: 061
     Dates: start: 2018, end: 20180531

REACTIONS (8)
  - Decreased appetite [Not Recovered/Not Resolved]
  - Asthenia [Not Recovered/Not Resolved]
  - Depressed mood [Not Recovered/Not Resolved]
  - Fall [Recovered/Resolved]
  - Off label use [Recovered/Resolved]
  - Dehydration [Not Recovered/Not Resolved]
  - Mobility decreased [Not Recovered/Not Resolved]
  - Weight decreased [Not Recovered/Not Resolved]

NARRATIVE: CASE EVENT DATE: 2018
